FAERS Safety Report 6505496-7 (Version None)
Quarter: 2009Q4

REPORT INFORMATION
  Report Type: 
  Country: None (occurrence: None)
  Receive Date: 20091217
  Receipt Date: 20091217
  Transmission Date: 20100525
  Serious: Yes (Hospitalization, Other)
  Sender: FDA-Public Use
  Company Number: None

PATIENT
  Age: 2 Year
  Sex: Female
  Weight: 15.8759 kg

DRUGS (2)
  1. TAMIFLU [Suspect]
     Indication: INFLUENZA LIKE ILLNESS
     Dosage: 3.75 ML TWICE DAILY PO
     Route: 048
     Dates: start: 20091214, end: 20091214
  2. AMOXICILLIN [Concomitant]

REACTIONS (1)
  - CONVULSION [None]
